FAERS Safety Report 24590785 (Version 1)
Quarter: 2024Q4

REPORT INFORMATION
  Report Type: Spontaneous
  Country: LB (occurrence: LB)
  Receive Date: 20241107
  Receipt Date: 20241107
  Transmission Date: 20250115
  Serious: Yes (Other)
  Sender: PRINSTON PHARMACEUTICAL
  Company Number: LB-PRINSTON PHARMACEUTICAL INC.-2024PRN00409

PATIENT
  Age: 29 Year
  Sex: Male

DRUGS (2)
  1. PAROXETINE [Suspect]
     Active Substance: PAROXETINE
     Indication: Generalised anxiety disorder
     Dosage: 20 MG, 1X/DAY
  2. PAROXETINE [Suspect]
     Active Substance: PAROXETINE
     Dosage: 20 MG, 1X/DAY

REACTIONS (1)
  - Mucosal prolapse syndrome [Recovered/Resolved]
